FAERS Safety Report 14474682 (Version 1)
Quarter: 2018Q1

REPORT INFORMATION
  Report Type: Spontaneous
  Country: US (occurrence: US)
  Receive Date: 20180201
  Receipt Date: 20180201
  Transmission Date: 20180509
  Serious: Yes (Other)
  Sender: FDA-Public Use
  Company Number: US-DSJP-DSU-2018-103392

PATIENT

DRUGS (4)
  1. WELCHOL [Suspect]
     Active Substance: COLESEVELAM HYDROCHLORIDE
     Indication: POST PROCEDURAL DIARRHOEA
     Dosage: 1250 MG, BID (2 TABLETS IN THE AM AND 2 IN THE PM)
     Route: 048
  2. PEPTO-BISMOL [Concomitant]
     Active Substance: BISMUTH SUBSALICYLATE
     Indication: DIARRHOEA
     Dosage: UNK
     Route: 065
  3. FLORASTOR [Concomitant]
     Active Substance: SACCHAROMYCES CEREVISIAE
     Indication: DIARRHOEA
     Dosage: UNK
     Route: 065
  4. VITAMIN K+D [Concomitant]
     Indication: SUPPLEMENTATION THERAPY
     Dosage: 10000 IU, UNK
     Route: 065

REACTIONS (7)
  - Hypertension [Not Recovered/Not Resolved]
  - Hip fracture [Not Recovered/Not Resolved]
  - Depression [Not Recovered/Not Resolved]
  - Off label use [Not Recovered/Not Resolved]
  - Drug administration error [Unknown]
  - Atrial fibrillation [Not Recovered/Not Resolved]
  - Anxiety [Not Recovered/Not Resolved]

NARRATIVE: CASE EVENT DATE: 2003
